FAERS Safety Report 8075490-6 (Version None)
Quarter: 2012Q1

REPORT INFORMATION
  Report Type: 
  Country: None (occurrence: None)
  Receive Date: 20120127
  Receipt Date: 20120120
  Transmission Date: 20120608
  Serious: Yes (Hospitalization)
  Sender: FDA-Public Use
  Company Number: DE-B.I. PHARMACEUTICALS,INC./RIDGEFIELD-2012-DE-00215DE

PATIENT
  Age: 55 Year
  Sex: Male

DRUGS (5)
  1. PRADAXA [Suspect]
  2. INSPRA [Concomitant]
     Indication: CARDIOMYOPATHY
  3. RAMIPRIL [Concomitant]
     Indication: CARDIOMYOPATHY
  4. TORSEMIDE [Concomitant]
     Indication: CARDIOMYOPATHY
  5. METOPROLOL TARTRATE [Concomitant]
     Indication: CARDIOMYOPATHY

REACTIONS (1)
  - CEREBROVASCULAR ACCIDENT [None]
